FAERS Safety Report 8150640-1 (Version None)
Quarter: 2012Q1

REPORT INFORMATION
  Report Type: 
  Country: None (occurrence: None)
  Receive Date: 20120220
  Receipt Date: 20120213
  Transmission Date: 20120608
  Serious: Yes (Other)
  Sender: FDA-Public Use
  Company Number: PHHY2011CA102061

PATIENT
  Sex: Female

DRUGS (1)
  1. ZOLEDRONOC ACID [Suspect]
     Indication: OSTEOPOROSIS
     Dosage: UNK UKN, UNK
     Route: 042
     Dates: start: 20110209

REACTIONS (5)
  - FINGER DEFORMITY [None]
  - BREAST PAIN [None]
  - DYSPHAGIA [None]
  - BREAST DISCOMFORT [None]
  - ANXIETY [None]
